FAERS Safety Report 26165043 (Version 2)
Quarter: 2025Q4

REPORT INFORMATION
  Report Type: Spontaneous
  Country: US (occurrence: US)
  Receive Date: 20251216
  Receipt Date: 20251226
  Transmission Date: 20260117
  Serious: No
  Sender: SANOFI AVENTIS
  Company Number: US-SANOFI-02743363

PATIENT
  Age: 68 Year
  Sex: Male

DRUGS (3)
  1. LANTUS SOLOSTAR [Suspect]
     Active Substance: INSULIN GLARGINE
     Indication: Type 2 diabetes mellitus
     Dosage: 50 IU, QD
     Route: 058
     Dates: start: 20251201
  2. LEVEMIR [Concomitant]
     Active Substance: INSULIN DETEMIR
  3. TRESIBA [Concomitant]
     Active Substance: INSULIN DEGLUDEC

REACTIONS (3)
  - Fine motor skill dysfunction [Unknown]
  - Injection site pain [Unknown]
  - Off label use [Unknown]

NARRATIVE: CASE EVENT DATE: 20251201
